FAERS Safety Report 17531658 (Version 1)
Quarter: 2020Q1

REPORT INFORMATION
  Report Type: Spontaneous
  Country: ES (occurrence: ES)
  Receive Date: 20200312
  Receipt Date: 20200312
  Transmission Date: 20200409
  Serious: Yes (Other)
  Sender: FDA-Public Use
  Company Number: ES-SA-2020SA059495

PATIENT
  Age: 74 Year
  Sex: Female
  Weight: 46 kg

DRUGS (1)
  1. LANTUS [Suspect]
     Active Substance: INSULIN GLARGINE
     Indication: TYPE 2 DIABETES MELLITUS
     Dosage: 6 IU, BID (6-0-6 IU)
     Route: 058
     Dates: start: 2018

REACTIONS (9)
  - Vomiting [Unknown]
  - Inappropriate schedule of product administration [Unknown]
  - Hypoglycaemia [Recovered/Resolved]
  - Blood glucose decreased [Unknown]
  - Malaise [Unknown]
  - Blood glucose fluctuation [Unknown]
  - Contusion [Unknown]
  - Bowel movement irregularity [Unknown]
  - Hyperglycaemia [Recovered/Resolved]

NARRATIVE: CASE EVENT DATE: 20200303
